FAERS Safety Report 16183559 (Version 2)
Quarter: 2019Q2

REPORT INFORMATION
  Report Type: Spontaneous
  Country: US (occurrence: US)
  Receive Date: 20190411
  Receipt Date: 20190416
  Transmission Date: 20190711
  Serious: Yes (Hospitalization)
  Sender: FDA-Public Use
  Company Number: US-FRESENIUS MEDICAL CARE RENAL THERAPIES GROUP-FMC-1904-000428

PATIENT
  Sex: Male

DRUGS (8)
  1. LISINOPRIL. [Concomitant]
     Active Substance: LISINOPRIL
  2. LASIX [Concomitant]
     Active Substance: FUROSEMIDE
  3. DELFLEX [Suspect]
     Active Substance: CALCIUM CHLORIDE\DEXTROSE\MAGNESIUM CHLORIDE\SODIUM CHLORIDE\SODIUM LACTATE
     Indication: END STAGE RENAL DISEASE
     Route: 033
  4. CLONIDINE. [Concomitant]
     Active Substance: CLONIDINE
  5. EPOGEN [Concomitant]
     Active Substance: ERYTHROPOIETIN
  6. METHADONE [Concomitant]
     Active Substance: METHADONE HYDROCHLORIDE
  7. NIFEDIPINE. [Concomitant]
     Active Substance: NIFEDIPINE
  8. CYCLOBENZAPRINE. [Concomitant]
     Active Substance: CYCLOBENZAPRINE

REACTIONS (1)
  - Mental status changes [Recovered/Resolved]
